FAERS Safety Report 8974761 (Version 1)
Quarter: 2012Q4

REPORT INFORMATION
  Report Type: 
  Country: US (occurrence: US)
  Receive Date: 20121219
  Receipt Date: 20121219
  Transmission Date: 20130627
  Serious: No
  Sender: FDA-Public Use
  Company Number: US-AMGEN-USASP2012054295

PATIENT
  Age: 54 Year
  Sex: Female

DRUGS (5)
  1. PROLIA [Suspect]
     Indication: OSTEOPENIA
     Dosage: UNK
     Dates: start: 20120716
  2. METOPROLOL [Concomitant]
     Dosage: UNK
  3. LIVALO [Concomitant]
     Dosage: UNK
  4. VITAMIN D /00107901/ [Concomitant]
  5. VITAMIN B-12 [Concomitant]

REACTIONS (3)
  - Monoclonal gammopathy [Not Recovered/Not Resolved]
  - Back pain [Not Recovered/Not Resolved]
  - Pain in extremity [Not Recovered/Not Resolved]
